FAERS Safety Report 7584214-8 (Version None)
Quarter: 2011Q2

REPORT INFORMATION
  Report Type: 
  Country: None (occurrence: None)
  Receive Date: 20110628
  Receipt Date: 20110628
  Transmission Date: 20111010
  Serious: Yes (Disabling)
  Sender: FDA-Public Use
  Company Number: None

PATIENT
  Sex: Female
  Weight: 64.4108 kg

DRUGS (1)
  1. AMIODARONE HCL [Suspect]
     Indication: ATRIAL FIBRILLATION
     Dosage: 200 MG 2 DAILY 2/8 UNTIL TWO WEEK PASSED THEN 1 1/2 2 EACH DAY FOR 2 WEEKS THEN 1 1/2
     Dates: start: 20100920

REACTIONS (1)
  - VISUAL IMPAIRMENT [None]
